FAERS Safety Report 8525147-X (Version None)
Quarter: 2012Q3

REPORT INFORMATION
  Report Type: 
  Country: None (occurrence: None)
  Receive Date: 20120720
  Receipt Date: 20120702
  Transmission Date: 20120928
  Serious: Yes (Hospitalization)
  Sender: FDA-Public Use
  Company Number: HR-BAXTER-2012BAX010422

PATIENT
  Age: 63 Year
  Sex: Male
  Weight: 102 kg

DRUGS (19)
  1. TAMSULOSIN HYDROCHLORIDE [Concomitant]
     Route: 048
  2. KALCIJEV KARBONAT KRKA [Concomitant]
     Route: 048
  3. NORVASC [Concomitant]
     Route: 048
  4. ASCORBIC ACID [Concomitant]
     Route: 048
  5. DIANEAL PD1 OTOPINA ZA PERITONEJSKU DIJALIZU S 1,36 GLUKOZE I ELEKTROL [Suspect]
     Route: 033
  6. DIANEAL PD1 OTOPINA ZA PERITONEJSKU DIJALIZU S 1,36 GLUKOZE I ELEKTROL [Suspect]
  7. DIANEAL PD-1 W/ DEXTROSE 2.5% IN PLASTIC CONTAINER [Suspect]
     Route: 033
  8. EBRANTIL [Concomitant]
     Route: 048
  9. MIRCERA [Concomitant]
     Route: 058
  10. EXTRANEAL [Suspect]
  11. LEVOTHYROXINE SODIUM [Concomitant]
     Indication: HYPOTHYROIDISM
     Route: 048
  12. PHYSIOTENS [Concomitant]
     Route: 048
  13. EDEMID [Concomitant]
     Route: 048
  14. LEVEMIR [Concomitant]
     Route: 058
  15. NOVORAPID [Concomitant]
     Route: 058
  16. EXTRANEAL [Suspect]
     Route: 033
  17. VENOFER [Concomitant]
     Route: 042
  18. DIANEAL PD-1 W/ DEXTROSE 2.5% IN PLASTIC CONTAINER [Suspect]
  19. CONCOR [Concomitant]
     Route: 048

REACTIONS (5)
  - PERITONITIS BACTERIAL [None]
  - DIARRHOEA [None]
  - PYREXIA [None]
  - CHILLS [None]
  - FLATULENCE [None]
